FAERS Safety Report 5750859-0 (Version None)
Quarter: 2008Q2

REPORT INFORMATION
  Report Type: 
  Country: None (occurrence: None)
  Receive Date: 20080528
  Receipt Date: 20080523
  Transmission Date: 20081010
  Serious: Yes (Life-Threatening, Hospitalization)
  Sender: FDA-Public Use
  Company Number: B0522489A

PATIENT
  Age: 71 Year
  Sex: Female

DRUGS (4)
  1. ORBENINE [Suspect]
     Indication: DRUG USE FOR UNKNOWN INDICATION
     Dosage: 1G PER DAY
     Route: 048
     Dates: start: 20080311, end: 20080311
  2. AMOXICILLIN [Suspect]
     Indication: DRUG USE FOR UNKNOWN INDICATION
     Route: 065
  3. SERETIDE [Concomitant]
     Indication: BRONCHOPNEUMOPATHY
     Route: 055
  4. VENTOLIN [Concomitant]
     Indication: BRONCHOPNEUMOPATHY
     Route: 065

REACTIONS (5)
  - ANGIOEDEMA [None]
  - BLOOD PRESSURE DECREASED [None]
  - COUGH [None]
  - PHARYNGEAL OEDEMA [None]
  - URTICARIA [None]
